FAERS Safety Report 5324064-6 (Version None)
Quarter: 2007Q2

REPORT INFORMATION
  Report Type: 
  Country: None (occurrence: None)
  Receive Date: 20070514
  Receipt Date: 20070503
  Transmission Date: 20071010
  Serious: Yes (Other)
  Sender: FDA-Public Use
  Company Number: US-ELI_LILLY_AND_COMPANY-US_0503114656

PATIENT
  Age: 81 Year
  Sex: Female
  Weight: 61.818 kg

DRUGS (7)
  1. NEXIUM [Concomitant]
  2. MACROBID [Concomitant]
  3. ADVAIR DISKUS 100/50 [Concomitant]
  4. CALCIUM WITH VITAMIN D [Concomitant]
  5. FORTEO [Suspect]
     Indication: OSTEOPOROSIS
     Dosage: 20 UG, DAILY (1/D)
     Dates: start: 20050217, end: 20050615
  6. FORTEO [Suspect]
     Dosage: UNK D/F, UNK
     Dates: start: 20061201
  7. SINGULAIR [Concomitant]
     Indication: ASTHMA

REACTIONS (20)
  - BACK PAIN [None]
  - BLADDER SPASM [None]
  - BONE PAIN [None]
  - BRONCHITIS [None]
  - DIFFUSE LARGE B-CELL LYMPHOMA STAGE III [None]
  - DIZZINESS [None]
  - DYSURIA [None]
  - FATIGUE [None]
  - FEELING ABNORMAL [None]
  - HEADACHE [None]
  - HYPERSENSITIVITY [None]
  - HYPOAESTHESIA [None]
  - INJECTION SITE HAEMORRHAGE [None]
  - INJECTION SITE SWELLING [None]
  - MOBILITY DECREASED [None]
  - MUSCLE SPASMS [None]
  - MUSCULOSKELETAL PAIN [None]
  - MYALGIA [None]
  - PAIN [None]
  - PAIN IN EXTREMITY [None]
